FAERS Safety Report 8414190-7 (Version None)
Quarter: 2012Q2

REPORT INFORMATION
  Report Type: 
  Country: None (occurrence: None)
  Receive Date: 20120605
  Receipt Date: 20120404
  Transmission Date: 20120825
  Serious: Yes (Hospitalization)
  Sender: FDA-Public Use
  Company Number: NL-MEDIMMUNE-MEDI-0014374

PATIENT
  Age: 22 Month
  Sex: Female

DRUGS (3)
  1. SYNAGIS [Suspect]
     Route: 030
     Dates: start: 20111229
  2. SYNAGIS [Suspect]
     Route: 030
     Dates: start: 20111202, end: 20111202
  3. SYNAGIS [Suspect]
     Indication: BRONCHOPULMONARY DYSPLASIA
     Route: 030
     Dates: start: 20111104, end: 20111104

REACTIONS (5)
  - VOMITING [None]
  - DEHYDRATION [None]
  - DIARRHOEA [None]
  - RESPIRATORY SYNCYTIAL VIRUS TEST POSITIVE [None]
  - DYSPNOEA [None]
